FAERS Safety Report 18913463 (Version 1)
Quarter: 2021Q1

REPORT INFORMATION
  Report Type: Spontaneous
  Country: FI (occurrence: FI)
  Receive Date: 20210219
  Receipt Date: 20210219
  Transmission Date: 20210420
  Serious: Yes (Other)
  Sender: FDA-Public Use
  Company Number: FI-TERSERA THERAPEUTICS LLC-2021TRS000724

PATIENT

DRUGS (1)
  1. ZOLADEX [Suspect]
     Active Substance: GOSERELIN ACETATE
     Indication: PROSTATE CANCER
     Dosage: EVERY THREE MONTHS
     Route: 058

REACTIONS (2)
  - Malignant neoplasm progression [Unknown]
  - Onychomycosis [Unknown]
